FAERS Safety Report 21322244 (Version 1)
Quarter: 2022Q3

REPORT INFORMATION
  Report Type: Spontaneous
  Country: DE (occurrence: DE)
  Receive Date: 20220912
  Receipt Date: 20220912
  Transmission Date: 20221027
  Serious: Yes (Other)
  Sender: FDA-Public Use
  Company Number: DE-JNJFOC-20210748780

PATIENT
  Age: 66 Year
  Sex: Male

DRUGS (4)
  1. ERLEADA [Suspect]
     Active Substance: APALUTAMIDE
     Indication: Prostate cancer metastatic
     Route: 048
     Dates: start: 20210301, end: 20210726
  2. TELMISARTAN [Concomitant]
     Active Substance: TELMISARTAN
     Dosage: IN THE MORNING FOR YEARS
  3. ASPIRIN [Concomitant]
     Active Substance: ASPIRIN
     Indication: Atrial septal defect
     Dosage: IN THE MORNING FOR YEARS
  4. PREDNISONE [Concomitant]
     Active Substance: PREDNISONE

REACTIONS (1)
  - Cutaneous T-cell lymphoma [Unknown]

NARRATIVE: CASE EVENT DATE: 20210701
